FAERS Safety Report 7724976 (Version 2)
Quarter: 2013Q1

REPORT INFORMATION
  Report Type: Spontaneous
  Country: CA (occurrence: CA)
  Receive Date: 20101221
  Receipt Date: 20130207
  Transmission Date: 20140127
  Serious: Yes (Hospitalization)
  Sender: FDA-Public Use
  Company Number: CA-ABBOTT-10P-028-0691641-00

PATIENT
  Age: 41 Year
  Sex: Male

DRUGS (4)
  1. BIAXIN [Suspect]
     Indication: PNEUMONIA
     Route: 048
     Dates: start: 20070316, end: 20070317
  2. BIAXIN [Suspect]
     Indication: MALAISE
  3. BIAXIN [Suspect]
     Indication: PYREXIA
  4. BIAXIN [Suspect]
     Indication: PHARYNGITIS

REACTIONS (12)
  - Schizophreniform disorder [Unknown]
  - Suicidal ideation [Recovered/Resolved]
  - Asthenia [Recovered/Resolved]
  - Fatigue [Recovered/Resolved]
  - Anxiety [Recovered/Resolved]
  - Abnormal behaviour [Unknown]
  - Asthenia [Not Recovered/Not Resolved]
  - Mental impairment [Unknown]
  - Incoherent [Unknown]
  - Abnormal behaviour [Unknown]
  - Psychiatric decompensation [Unknown]
  - Psychotic disorder [Recovered/Resolved with Sequelae]
